FAERS Safety Report 6821995-2 (Version None)
Quarter: 2010Q3

REPORT INFORMATION
  Report Type: 
  Country: None (occurrence: None)
  Receive Date: 20100708
  Receipt Date: 20100701
  Transmission Date: 20110219
  Serious: Yes (Other)
  Sender: FDA-Public Use
  Company Number: US-ELI_LILLY_AND_COMPANY-US201003002446

PATIENT
  Sex: Male
  Weight: 118.37 kg

DRUGS (5)
  1. BYETTA [Suspect]
     Indication: TYPE 2 DIABETES MELLITUS
     Dosage: 10 UG, 2/D
     Dates: start: 20080313, end: 20080612
  2. BYETTA [Suspect]
     Dosage: 10 UG, 2/D
     Dates: start: 20080612, end: 20100316
  3. METFORMIN HCL [Concomitant]
     Dates: start: 20020301
  4. CADUET [Concomitant]
     Dates: start: 20040601
  5. LISINOPRIL HCT                     /01613901/ [Concomitant]
     Dates: start: 20040601

REACTIONS (3)
  - ABDOMINAL DISCOMFORT [None]
  - PANCREATITIS [None]
  - WEIGHT DECREASED [None]
